FAERS Safety Report 5262842-2 (Version None)
Quarter: 2007Q1

REPORT INFORMATION
  Report Type: 
  Country: None (occurrence: None)
  Receive Date: 20061219
  Receipt Date: 20060914
  Transmission Date: 20070707
  Serious: No
  Sender: FDA-Public Use
  Company Number: 2006US001557

PATIENT
  Sex: Male

DRUGS (5)
  1. VESICARE [Suspect]
     Indication: POLLAKIURIA
     Dosage: 5 MG, ORAL
     Route: 048
     Dates: start: 20060101
  2. COUMADIN [Concomitant]
  3. FUROSEMIDE (FUROSEMIDE SODIUM) [Concomitant]
  4. TOPROL-XL [Concomitant]
  5. TRAMADOL HCL [Concomitant]

REACTIONS (3)
  - CONSTIPATION [None]
  - POLLAKIURIA [None]
  - VISION BLURRED [None]
